FAERS Safety Report 4277833-8 (Version None)
Quarter: 2004Q1

REPORT INFORMATION
  Report Type: 
  Country: None (occurrence: None)
  Receive Date: 20040121
  Receipt Date: 20040112
  Transmission Date: 20041129
  Serious: Yes (Other)
  Sender: FDA-Public Use
  Company Number: GBWYE503412JAN04

PATIENT
  Age: 42 Year
  Sex: Male

DRUGS (1)
  1. GEMTUZUMAB OZOGAMICIN (GEMTUZUMAB OZOGAMACIN, INJECTION) [Suspect]
     Dates: start: 20040107

REACTIONS (1)
  - LIVER FUNCTION TEST ABNORMAL [None]
